FAERS Safety Report 15267393 (Version 1)
Quarter: 2018Q3

REPORT INFORMATION
  Report Type: Spontaneous
  Country: US (occurrence: US)
  Receive Date: 20180724
  Receipt Date: 20180724
  Transmission Date: 20181010
  Serious: Yes (Hospitalization, Other)
  Sender: FDA-Public Use
  Company Number: None

PATIENT
  Age: 79 Year
  Sex: Male
  Weight: 66.6 kg

DRUGS (16)
  1. WAL TUSSIN DM [Concomitant]
     Active Substance: DEXTROMETHORPHAN HYDROBROMIDE\GUAIFENESIN
  2. BISACODYL. [Concomitant]
     Active Substance: BISACODYL
  3. LEVOTHYROXINE. [Concomitant]
     Active Substance: LEVOTHYROXINE
  4. OXYCODONE AND ACETAMINOPHEN [Concomitant]
     Active Substance: ACETAMINOPHEN\OXYCODONE HYDROCHLORIDE
  5. PEG 3350 [Concomitant]
     Active Substance: POLYETHYLENE GLYCOL 3350
  6. PRAVASTATIN. [Concomitant]
     Active Substance: PRAVASTATIN
  7. INLYTA [Suspect]
     Active Substance: AXITINIB
     Route: 048
     Dates: start: 20170831
  8. LEVAQUIN [Concomitant]
     Active Substance: LEVOFLOXACIN
  9. ZOLPIDEM [Concomitant]
     Active Substance: ZOLPIDEM\ZOLPIDEM TARTRATE
  10. ASPIRIN. [Concomitant]
     Active Substance: ASPIRIN
  11. ENALAPRIL [Concomitant]
     Active Substance: ENALAPRIL
  12. MEGESTROL [Concomitant]
     Active Substance: MEGESTROL
  13. FENTANYL. [Concomitant]
     Active Substance: FENTANYL
  14. TRAZODONE [Concomitant]
     Active Substance: TRAZODONE HYDROCHLORIDE
  15. CITRACAL + D3 [Concomitant]
  16. CYANOCOBALAMIN. [Concomitant]
     Active Substance: CYANOCOBALAMIN

REACTIONS (5)
  - Neuropathy peripheral [None]
  - Movement disorder [None]
  - Constipation [None]
  - Decreased appetite [None]
  - Pneumonia [None]
